FAERS Safety Report 10408890 (Version 1)
Quarter: 2014Q3

REPORT INFORMATION
  Report Type: Spontaneous
  Country: US (occurrence: None)
  Receive Date: 20140825
  Receipt Date: 20140825
  Transmission Date: 20150326
  Serious: Yes (Other)
  Sender: FDA-Public Use
  Company Number: None

PATIENT
  Age: 32 Year
  Sex: Female
  Weight: 65.77 kg

DRUGS (1)
  1. KENALOG [Suspect]
     Active Substance: TRIAMCINOLONE ACETONIDE
     Indication: PHARYNGITIS STREPTOCOCCAL
     Dates: start: 20130613

REACTIONS (11)
  - Injection site atrophy [None]
  - Injection site pain [None]
  - Lipoatrophy [None]
  - Skin atrophy [None]
  - Wrong technique in drug usage process [None]
  - Pharyngitis streptococcal [None]
  - Injection site reaction [None]
  - Condition aggravated [None]
  - Impaired work ability [None]
  - Malaise [None]
  - Injection site discolouration [None]

NARRATIVE: CASE EVENT DATE: 20130613
